FAERS Safety Report 7411061-X (Version None)
Quarter: 2011Q2

REPORT INFORMATION
  Report Type: 
  Country: None (occurrence: None)
  Receive Date: 20110413
  Receipt Date: 20110406
  Transmission Date: 20111010
  Serious: Yes (Other)
  Sender: FDA-Public Use
  Company Number: FR-ASTELLAS-2011EU001424

PATIENT
  Sex: Female
  Weight: 103 kg

DRUGS (11)
  1. INEGY [Concomitant]
     Indication: HYPERCHOLESTEROLAEMIA
     Dosage: 1 DF, UNKNOWN/D
     Route: 048
  2. TELMISARTAN [Concomitant]
     Indication: HYPERTENSION
     Dosage: 1 DF, UNKNOWN/D
     Route: 048
  3. LASIX [Concomitant]
     Indication: CARDIAC FAILURE
     Dosage: UNK DF, UNKNOWN/D
     Route: 048
  4. DI-ACTANE [Concomitant]
     Indication: ARTERITIS INFECTIVE
     Dosage: 2 DF, UNKNOWN/D
     Route: 048
  5. ALLOPURINOL [Concomitant]
     Indication: HYPERURICAEMIA
     Dosage: 1 DF, UNKNOWN/D
     Route: 065
  6. DIGOXINE [Concomitant]
     Indication: CARDIAC FAILURE
     Dosage: 1 DF, UNKNOWN/D
     Route: 065
  7. PREVISCAN [Concomitant]
     Indication: ATRIAL FIBRILLATION
     Dosage: 75 DF, UNKNOWN/D
     Route: 048
  8. VESICARE [Suspect]
     Indication: HYPERTONIC BLADDER
     Dosage: 5 MG, UID/QD
     Route: 048
     Dates: start: 20110101
  9. VESICARE [Suspect]
     Dosage: 10 MG, UID/QD
     Route: 048
     Dates: start: 20101201, end: 20110104
  10. CARDENSIEL [Concomitant]
     Indication: CARDIAC FAILURE
     Dosage: 1 DF, UNKNOWN/D
     Route: 048
  11. METFORMINE [Concomitant]
     Indication: TYPE 2 DIABETES MELLITUS
     Dosage: 2 DF, UNKNOWN/D
     Route: 065

REACTIONS (3)
  - DRY MOUTH [None]
  - BRONCHITIS [None]
  - GLOSSITIS [None]
